FAERS Safety Report 18379147 (Version 1)
Quarter: 2020Q4

REPORT INFORMATION
  Report Type: Spontaneous
  Country: US (occurrence: US)
  Receive Date: 20201014
  Receipt Date: 20201014
  Transmission Date: 20210114
  Serious: Yes (Death, Life-Threatening, Other)
  Sender: FDA-Public Use
  Company Number: US-AMGEN-USASP2020163022

PATIENT

DRUGS (5)
  1. PEGFILGRASTIM [Suspect]
     Active Substance: PEGFILGRASTIM
     Indication: PRODUCT USED FOR UNKNOWN INDICATION
     Dosage: 6 MICROGRAM ON DAY 02
     Route: 058
  2. FILGRASTIM [Suspect]
     Active Substance: FILGRASTIM
     Indication: PRODUCT USED FOR UNKNOWN INDICATION
     Dosage: 5 MICROGRAM/KILOGRAM ON DAY 5 TO 15
     Route: 058
  3. CYCLOPHOSPHAMIDE. [Suspect]
     Active Substance: CYCLOPHOSPHAMIDE
     Indication: BREAST CANCER
     Dosage: 600 MILLIGRAM/SQ. METER, Q3WK
     Route: 065
  4. DOCETAXEL. [Suspect]
     Active Substance: DOCETAXEL
     Indication: BREAST CANCER
     Dosage: 75 MILLIGRAM/SQ. METER, Q3WK
     Route: 065
  5. EPIRUBICIN [Suspect]
     Active Substance: EPIRUBICIN
     Indication: BREAST CANCER
     Dosage: 75 MILLIGRAM/SQ. METER, Q3WK
     Route: 065

REACTIONS (38)
  - Hot flush [Unknown]
  - Dehydration [Unknown]
  - Diarrhoea [Unknown]
  - Constipation [Unknown]
  - Bone pain [Unknown]
  - Neutropenia [Unknown]
  - Hyperglycaemia [Unknown]
  - Myalgia [Unknown]
  - Dizziness [Unknown]
  - Urinary tract infection [Unknown]
  - Anaemia [Unknown]
  - Sinusitis [Unknown]
  - Vomiting [Unknown]
  - Breast cancer recurrent [Fatal]
  - Abdominal pain [Unknown]
  - Eye irritation [Unknown]
  - Fatigue [Unknown]
  - Gastroenteritis [Unknown]
  - Chest pain [Unknown]
  - Headache [Unknown]
  - Skin reaction [Unknown]
  - Taste disorder [Unknown]
  - Insomnia [Unknown]
  - Dyspepsia [Unknown]
  - Fungal infection [Unknown]
  - Oedema [Unknown]
  - Mucosal inflammation [Unknown]
  - Decreased appetite [Unknown]
  - Alopecia [Unknown]
  - Lymphopenia [Unknown]
  - Neuropathy peripheral [Unknown]
  - Febrile neutropenia [Unknown]
  - Mood altered [Unknown]
  - Rhinorrhoea [Unknown]
  - Nausea [Unknown]
  - Upper respiratory tract infection [Unknown]
  - Catheter site related reaction [Unknown]
  - Syncope [Unknown]
